FAERS Safety Report 9521236 (Version 1)
Quarter: 2013Q3

REPORT INFORMATION
  Report Type: Spontaneous
  Country: US (occurrence: US)
  Receive Date: 20130913
  Receipt Date: 20130913
  Transmission Date: 20140515
  Serious: Yes (Hospitalization)
  Sender: FDA-Public Use
  Company Number: US-JNJFOC-20130902065

PATIENT
  Age: 83 Year
  Sex: Male

DRUGS (2)
  1. ZYTIGA [Suspect]
     Indication: PRODUCT USED FOR UNKNOWN INDICATION
     Route: 048
  2. PREDNISONE [Concomitant]
     Indication: PRODUCT USED FOR UNKNOWN INDICATION
     Route: 065

REACTIONS (5)
  - Prostatic specific antigen increased [Recovered/Resolved]
  - Muscle enzyme increased [Recovered/Resolved]
  - Muscular weakness [Recovered/Resolved]
  - Blood lactate dehydrogenase increased [Recovered/Resolved]
  - Abasia [Recovered/Resolved]
